FAERS Safety Report 5415844-7 (Version None)
Quarter: 2007Q3

REPORT INFORMATION
  Report Type: 
  Country: None (occurrence: None)
  Receive Date: 20070731
  Receipt Date: 20070604
  Transmission Date: 20080115
  Serious: No
  Sender: FDA-Public Use
  Company Number: US200706000785

PATIENT
  Sex: Male

DRUGS (3)
  1. BYETTA [Suspect]
     Dosage: 10 UG, SUBCUTANEOUS 10 UG, 2/D, SUBCUTANEOUS
     Route: 058
     Dates: end: 20070501
  2. BYETTA [Suspect]
     Dosage: 10 UG, SUBCUTANEOUS 10 UG, 2/D, SUBCUTANEOUS
     Route: 058
     Dates: start: 20070501
  3. EXENATIDE 5MCG PEN, DISPOSABLE DEVICE (EXENATIDE PEN (5MCG)) PEN, DISP [Concomitant]

REACTIONS (1)
  - BLOOD GLUCOSE INCREASED [None]
